FAERS Safety Report 7627519-4 (Version None)
Quarter: 2011Q3

REPORT INFORMATION
  Report Type: 
  Country: None (occurrence: None)
  Receive Date: 20110721
  Receipt Date: 20110715
  Transmission Date: 20111222
  Serious: Yes (Hospitalization)
  Sender: FDA-Public Use
  Company Number: CA-ABBOTT-11P-028-0839509-00

PATIENT
  Sex: Male
  Weight: 49.94 kg

DRUGS (1)
  1. LUPRON DEPOT [Suspect]
     Indication: PROSTATE CANCER
     Route: 030
     Dates: start: 20100805

REACTIONS (3)
  - GASTROINTESTINAL DISORDER [None]
  - PROSTATE CANCER METASTATIC [None]
  - URINARY TRACT DISORDER [None]
